FAERS Safety Report 5510040-7 (Version None)
Quarter: 2007Q4

REPORT INFORMATION
  Report Type: 
  Country: None (occurrence: None)
  Receive Date: 20071108
  Receipt Date: 20070405
  Transmission Date: 20080405
  Serious: No
  Sender: FDA-Public Use
  Company Number: US-ABBOTT-07P-163-0364359-00

PATIENT
  Sex: Female
  Weight: 59.02 kg

DRUGS (2)
  1. BIAXIN [Suspect]
     Indication: SINUSITIS
     Route: 048
     Dates: start: 20070404
  2. BIRTH CONTROL PILLS [Concomitant]
     Indication: CONTRACEPTION
     Route: 048
     Dates: start: 19870101

REACTIONS (3)
  - ABDOMINAL PAIN UPPER [None]
  - DYSGEUSIA [None]
  - NAUSEA [None]
